FAERS Safety Report 7913800-8 (Version None)
Quarter: 2011Q4

REPORT INFORMATION
  Report Type: 
  Country: None (occurrence: None)
  Receive Date: 20111115
  Receipt Date: 20111031
  Transmission Date: 20120403
  Serious: Yes (Hospitalization)
  Sender: FDA-Public Use
  Company Number: DE-UCBSA-043203

PATIENT
  Sex: Female
  Weight: 98 kg

DRUGS (5)
  1. AMANTADINE HCL [Suspect]
     Dates: start: 20080101, end: 20110501
  2. NEUPRO [Suspect]
     Dosage: INCREASED OVER THE COURSE OF THREE YEARS
     Route: 062
  3. NEUPRO [Suspect]
     Indication: PARKINSON'S DISEASE
     Dosage: 2 MG+8 MG DAILY
     Route: 062
     Dates: start: 20110501
  4. AZILECT [Concomitant]
     Indication: PARKINSON'S DISEASE
     Dates: start: 20090101
  5. NEUPRO [Suspect]
     Dosage: UNKNOWN DOSE
     Route: 062
     Dates: start: 20080101

REACTIONS (10)
  - MALAISE [None]
  - MITRAL VALVE SCLEROSIS [None]
  - MITRAL VALVE INCOMPETENCE [None]
  - DRUG INEFFECTIVE [None]
  - PARKINSON'S DISEASE [None]
  - AORTIC VALVE INCOMPETENCE [None]
  - EMOTIONAL DISTRESS [None]
  - CARDIOVASCULAR DISORDER [None]
  - PULMONARY VALVE INCOMPETENCE [None]
  - LIVEDO RETICULARIS [None]
